FAERS Safety Report 6603956-1 (Version None)
Quarter: 2010Q1

REPORT INFORMATION
  Report Type: 
  Country: None (occurrence: None)
  Receive Date: 20100226
  Receipt Date: 20090326
  Transmission Date: 20100710
  Serious: Yes (Other)
  Sender: FDA-Public Use
  Company Number: A0775639A

PATIENT
  Age: 37 Year
  Sex: Female

DRUGS (2)
  1. LAMOTRIGINE [Suspect]
     Indication: EPILEPSY
     Dosage: 500MG TWICE PER DAY
     Route: 048
     Dates: start: 20080901, end: 20090201
  2. HYDROCODONE [Concomitant]

REACTIONS (2)
  - CONVULSION [None]
  - FATIGUE [None]
